FAERS Safety Report 11024821 (Version 1)
Quarter: 2015Q2

REPORT INFORMATION
  Report Type: Spontaneous
  Country: SE (occurrence: None)
  Receive Date: 20150410
  Receipt Date: 20150410
  Transmission Date: 20150821
  Serious: Yes (Hospitalization)
  Sender: FDA-Public Use
  Company Number: 1503SWE008616

PATIENT
  Age: 68 Year
  Sex: Female

DRUGS (20)
  1. ALLOPURINOL. [Concomitant]
     Active Substance: ALLOPURINOL
  2. CANODERM (UREA) [Concomitant]
  3. LOPERAMIDE HYDROCHLORIDE. [Concomitant]
     Active Substance: LOPERAMIDE HYDROCHLORIDE
  4. ALDARA (IMIQUIMOD) CREAM [Concomitant]
  5. FOSAMAX VECKOTABLETT 70 MG TABLETTER (ALENDRONATE SODIUM) [Concomitant]
  6. IMOVANE [Concomitant]
     Active Substance: ZOPICLONE
  7. CEDAX [Suspect]
     Active Substance: CEFTIBUTEN DIHYDRATE
     Indication: ANTIBIOTIC PROPHYLAXIS
     Dosage: ACCORDING TO A SCHEME, PHARMACEUTICAL FORM (DOSAGE FORM) :CAPSULE, HARD
     Dates: end: 201402
  8. FURIX (FUROSEMIDE) [Concomitant]
     Active Substance: FUROSEMIDE
  9. MIMPARA (CINACALCET HYDROCHLORIDE) [Concomitant]
  10. IMODIUM (LPERAMIDE HYDROCHLORIDE) [Concomitant]
  11. PANODIL (ACETAMINOPHEN) [Concomitant]
  12. ATORVASTATIN [Concomitant]
     Active Substance: ATORVASTATIN
  13. SPIRONOLACTONE. [Concomitant]
     Active Substance: SPIRONOLACTONE
  14. OMEPRAZOLE. [Concomitant]
     Active Substance: OMEPRAZOLE
  15. NEORAL SANDIMMUN (CYCLOSPORINE) [Concomitant]
  16. TRADOLAN (TRAMADOL HYDROCHLORIDE) [Concomitant]
  17. SELEXID [Suspect]
     Active Substance: AMDINOCILLIN PIVOXIL HYDROCHLORIDE
     Indication: ANTIBIOTIC PROPHYLAXIS
     Dosage: ACCORDING TO A SCHEME
     Dates: end: 201402
  18. ALFADIL (DOXAZOSIN MESYLATE) [Concomitant]
  19. GLYTRIN (NITROGLYCERIN) [Concomitant]
  20. PREDNISOLONE. [Concomitant]
     Active Substance: PREDNISOLONE

REACTIONS (5)
  - Dehydration [None]
  - Diarrhoea [None]
  - Pyrexia [None]
  - Infection [None]
  - C-reactive protein increased [None]

NARRATIVE: CASE EVENT DATE: 20150211
